FAERS Safety Report 10551830 (Version 2)
Quarter: 2014Q4

REPORT INFORMATION
  Report Type: Spontaneous
  Country: JP (occurrence: JP)
  Receive Date: 20141029
  Receipt Date: 20141031
  Transmission Date: 20150529
  Serious: Yes (Other)
  Sender: FDA-Public Use
  Company Number: PHHY2014JP138993

PATIENT
  Age: 41 Year
  Sex: Female

DRUGS (7)
  1. IFOSFAMIDE. [Suspect]
     Active Substance: IFOSFAMIDE
     Indication: OSTEOSARCOMA
     Dosage: 45 G, TOTAL
     Route: 042
  2. METHOTREXATE [Suspect]
     Active Substance: METHOTREXATE
     Indication: OSTEOSARCOMA
     Dosage: 342 G, UNK
     Route: 065
  3. 5-FLUOROURACIL [Suspect]
     Active Substance: FLUOROURACIL
     Indication: TONGUE NEOPLASM
     Route: 065
  4. CISPLATIN. [Suspect]
     Active Substance: CISPLATIN
     Indication: OSTEOSARCOMA
     Route: 065
  5. DOXORUBICIN [Suspect]
     Active Substance: DOXORUBICIN
     Indication: OSTEOSARCOMA
     Route: 065
  6. VINCRISTINE [Suspect]
     Active Substance: VINCRISTINE
     Indication: OSTEOSARCOMA
     Route: 065
  7. ACTINOMYCIN D [Suspect]
     Active Substance: DACTINOMYCIN
     Indication: OSTEOSARCOMA
     Route: 065

REACTIONS (7)
  - Breast mass [Recovered/Resolved]
  - Papillary thyroid cancer [Unknown]
  - Mucosal inflammation [Unknown]
  - Tongue neoplasm [Unknown]
  - Intraductal proliferative breast lesion [Recovered/Resolved]
  - Metastatic squamous cell carcinoma [Unknown]
  - Intraductal papilloma of breast [Recovered/Resolved]
